FAERS Safety Report 6592884-6 (Version None)
Quarter: 2010Q1

REPORT INFORMATION
  Report Type: 
  Country: None (occurrence: None)
  Receive Date: 20100212
  Receipt Date: 20100128
  Transmission Date: 20100710
  Serious: Yes (Other)
  Sender: FDA-Public Use
  Company Number: 2010SP006243

PATIENT
  Sex: Female

DRUGS (4)
  1. MIRTAZAPINE [Suspect]
     Indication: DEPRESSION
     Dosage: 15 MG;PO
     Route: 048
     Dates: start: 20091010, end: 20100110
  2. ZOLPIDEM TARTRATE [Concomitant]
  3. BROTIZOLAM [Concomitant]
  4. ITOPRIDE HYDROCHLORIDE [Concomitant]

REACTIONS (4)
  - COMPRESSION FRACTURE [None]
  - FALL [None]
  - RIB FRACTURE [None]
  - SOMNOLENCE [None]
